FAERS Safety Report 10191019 (Version 1)
Quarter: 2014Q2

REPORT INFORMATION
  Report Type: Spontaneous
  Country: GB (occurrence: GB)
  Receive Date: 20140523
  Receipt Date: 20140523
  Transmission Date: 20141212
  Serious: Yes (Hospitalization)
  Sender: FDA-Public Use
  Company Number: GB-AMGEN-GBRSP2014037048

PATIENT
  Age: 49 Year
  Sex: Female
  Weight: 89 kg

DRUGS (9)
  1. XGEVA [Suspect]
     Indication: BREAST CANCER METASTATIC
     Dosage: 120 MG, UNK
     Route: 058
     Dates: start: 20140207, end: 20140307
  2. ADCAL D3 [Concomitant]
     Dosage: UNK
     Dates: start: 20140305
  3. CYCLIZINE [Concomitant]
     Dosage: UNK
     Dates: start: 20140402
  4. DICLOFENAC [Concomitant]
     Dosage: UNK
     Dates: start: 20131028, end: 20140407
  5. FENTANYL [Concomitant]
     Dosage: UNK
     Dates: start: 20140312
  6. GABAPENTIN [Concomitant]
     Indication: NEURALGIA
     Dosage: UNK
     Dates: start: 20140211
  7. LANSOPRAZOLE [Concomitant]
     Dosage: UNK
     Dates: start: 20140108, end: 20140410
  8. OXYNORM [Concomitant]
     Dosage: UNK
     Dates: start: 20140227
  9. PARACETAMOL [Concomitant]
     Indication: PAIN
     Dosage: UNK
     Dates: start: 20131231

REACTIONS (10)
  - Abdominal pain [Recovering/Resolving]
  - Apoptosis [Recovering/Resolving]
  - Aphthous stomatitis [Recovering/Resolving]
  - Colitis [Recovering/Resolving]
  - Renal failure acute [Recovering/Resolving]
  - Defaecation urgency [Recovering/Resolving]
  - Faecal volume increased [Recovering/Resolving]
  - Frequent bowel movements [Recovering/Resolving]
  - Inflammation [Recovering/Resolving]
  - Diarrhoea [Recovering/Resolving]
